FAERS Safety Report 20960818 (Version 1)
Quarter: 2022Q2

REPORT INFORMATION
  Report Type: Spontaneous
  Country: US (occurrence: US)
  Receive Date: 20220615
  Receipt Date: 20220615
  Transmission Date: 20220721
  Serious: No
  Sender: FDA-Public Use
  Company Number: US-BRISTOL-MYERS SQUIBB COMPANY-2022-046015

PATIENT
  Age: 81 Year
  Sex: Male

DRUGS (1)
  1. POMALYST [Suspect]
     Active Substance: POMALIDOMIDE
     Indication: Plasma cell myeloma
     Dosage: FREQUENCY-TAKE 1 CAPSULE (3MG) BY MOUTH FOR 21 DAYSON THEN 7 DAYS OFF.
     Route: 048
     Dates: start: 20211206

REACTIONS (1)
  - White blood cell count decreased [Unknown]
